FAERS Safety Report 16118576 (Version 1)
Quarter: 2019Q1

REPORT INFORMATION
  Report Type: Spontaneous
  Country: FR (occurrence: FR)
  Receive Date: 20190326
  Receipt Date: 20190326
  Transmission Date: 20190418
  Serious: Yes (Congenital Anomaly)
  Sender: FDA-Public Use
  Company Number: PHHY2019FR062297

PATIENT
  Sex: Female
  Weight: 2.21 kg

DRUGS (4)
  1. SERTRALINE [Suspect]
     Active Substance: SERTRALINE HYDROCHLORIDE
     Indication: FOETAL EXPOSURE DURING PREGNANCY
     Dosage: MOTHER DOSE: UNKNOWN
     Route: 064
  2. RISPERIDONE. [Suspect]
     Active Substance: RISPERIDONE
     Indication: EXPOSURE VIA BREAST MILK
     Dosage: MOTHER DOSE: UNKNOWN
     Route: 063
  3. LAMOTRIGINE. [Suspect]
     Active Substance: LAMOTRIGINE
     Indication: FOETAL EXPOSURE DURING PREGNANCY
     Dosage: MOTHER DOSE: UNKNOWN
     Route: 064
  4. DONORMYL (DOXYLAMINE SUCCINATE) [Suspect]
     Active Substance: DOXYLAMINE SUCCINATE
     Indication: FOETAL EXPOSURE DURING PREGNANCY
     Dosage: MOTHER DOSE: UNKNOWN
     Route: 064

REACTIONS (5)
  - Oesophageal atresia [Recovered/Resolved]
  - Hemivertebra [Not Recovered/Not Resolved]
  - Maternal drugs affecting foetus [None]
  - Exposure via breast milk [None]
  - Congenital anomaly [None]

NARRATIVE: CASE EVENT DATE: 20190216
